FAERS Safety Report 5670719-3 (Version None)
Quarter: 2008Q1

REPORT INFORMATION
  Report Type: 
  Country: None (occurrence: None)
  Receive Date: 20080318
  Receipt Date: 20080307
  Transmission Date: 20080703
  Serious: Yes (Hospitalization)
  Sender: FDA-Public Use
  Company Number: PHBS2008CH03064

PATIENT
  Age: 81 Year
  Sex: Female

DRUGS (1)
  1. LEPONEX [Suspect]
     Dosage: 25 MG/DAY
     Dates: end: 20071228

REACTIONS (7)
  - C-REACTIVE PROTEIN INCREASED [None]
  - DISORIENTATION [None]
  - FEBRILE NEUTROPENIA [None]
  - HAEMOGLOBIN DECREASED [None]
  - PYREXIA [None]
  - RED BLOOD CELL SEDIMENTATION RATE INCREASED [None]
  - WHITE BLOOD CELL COUNT DECREASED [None]
